FAERS Safety Report 6574790-6 (Version None)
Quarter: 2010Q1

REPORT INFORMATION
  Report Type: 
  Country: None (occurrence: None)
  Receive Date: 20100209
  Receipt Date: 20100126
  Transmission Date: 20100710
  Serious: Yes (Other)
  Sender: FDA-Public Use
  Company Number: PHHY2010US04922

PATIENT
  Age: 62 Year
  Sex: Male

DRUGS (2)
  1. ZOLEDRONIC ACID [Suspect]
     Indication: BONE DISORDER
     Dosage: 8 MG, QMO
  2. CHEMOTHERAPEUTICS NOS [Suspect]

REACTIONS (3)
  - HYPOCALCAEMIA [None]
  - RENAL FAILURE [None]
  - STEM CELL TRANSPLANT [None]
